FAERS Safety Report 17910032 (Version 1)
Quarter: 2020Q2

REPORT INFORMATION
  Report Type: Report from Study
  Country: BR (occurrence: BR)
  Receive Date: 20200618
  Receipt Date: 20200618
  Transmission Date: 20200714
  Serious: Yes (Hospitalization, Other)
  Sender: FDA-Public Use
  Company Number: BR-ROCHE-2544492

PATIENT
  Age: 37 Year
  Sex: Male
  Weight: 54 kg

DRUGS (3)
  1. CREON [Concomitant]
     Active Substance: PANCRELIPASE AMYLASE\PANCRELIPASE LIPASE\PANCRELIPASE PROTEASE
  2. MEROPENEM. [Concomitant]
     Active Substance: MEROPENEM
  3. PULMOZYME [Suspect]
     Active Substance: DORNASE ALFA
     Indication: CYSTIC FIBROSIS
     Dosage: AT NIGHT BEFORE BED
     Route: 065
     Dates: start: 199901

REACTIONS (15)
  - Dyspnoea [Recovering/Resolving]
  - Dependence on oxygen therapy [Unknown]
  - Peripheral swelling [Unknown]
  - Cough [Unknown]
  - Insomnia [Unknown]
  - Oxygen saturation decreased [Unknown]
  - Pseudomonas infection [Unknown]
  - Diabetes mellitus [Unknown]
  - Swelling [Unknown]
  - COVID-19 [Unknown]
  - Fatigue [Unknown]
  - Lung transplant rejection [Recovering/Resolving]
  - Pulmonary oedema [Unknown]
  - Bacterial infection [Unknown]
  - Myalgia [Not Recovered/Not Resolved]

NARRATIVE: CASE EVENT DATE: 2015
